FAERS Safety Report 5346418-4 (Version None)
Quarter: 2007Q2

REPORT INFORMATION
  Report Type: 
  Country: None (occurrence: None)
  Receive Date: 20070605
  Receipt Date: 20070529
  Transmission Date: 20071010
  Serious: Yes (Death)
  Sender: FDA-Public Use
  Company Number: JP-SHR-JP-2005-025131

PATIENT
  Age: 56 Year
  Sex: Male
  Weight: 63 kg

DRUGS (28)
  1. FLUDARA [Suspect]
     Indication: CHRONIC LYMPHOCYTIC LEUKAEMIA
     Dosage: 33.2 MG, CYCLE X 5D
     Route: 042
     Dates: start: 20050304, end: 20050308
  2. FLUDARA [Suspect]
     Dosage: 33.2 MG, CYCLE X 5D
     Route: 042
     Dates: start: 20050521, end: 20050525
  3. FLUDARA [Suspect]
     Dosage: 33.2 MG, CYCLE X 5D
     Route: 042
     Dates: start: 20050618, end: 20050622
  4. MEROPEN [Concomitant]
     Indication: PNEUMONIA
     Dosage: 1 G, 1X/DAY
     Route: 042
     Dates: start: 20050303, end: 20050316
  5. MEROPEN [Concomitant]
     Dosage: 1 G, 1X/DAY
     Route: 042
     Dates: start: 20050406, end: 20050413
  6. EXACIN [Concomitant]
     Indication: PNEUMONIA
     Dosage: 400 MG, 1X/DAY
     Route: 042
     Dates: start: 20050303, end: 20050316
  7. LEVOFLOXACIN [Concomitant]
     Indication: ENTEROCOLITIS
     Dosage: 300 MG, 1X/DAY
     Route: 048
     Dates: start: 20050225, end: 20050304
  8. LEVOFLOXACIN [Concomitant]
     Dosage: 300 MG, 1X/DAY
     Route: 048
     Dates: start: 20050517, end: 20050531
  9. LEVOFLOXACIN [Concomitant]
     Dosage: 300 MG, 1X/DAY
     Route: 048
     Dates: start: 20050623, end: 20050627
  10. DIFLUCAN [Concomitant]
     Indication: ANTIFUNGAL PROPHYLAXIS
     Dosage: 200 MG, 1X/DAY
     Route: 048
     Dates: start: 20050226, end: 20050406
  11. DIFLUCAN [Concomitant]
     Dosage: 100 MG, 1X/DAY
     Route: 048
     Dates: start: 20050414, end: 20050420
  12. DIFLUCAN [Concomitant]
     Dosage: 200 MG, 1X/DAY
     Route: 048
     Dates: start: 20050615, end: 20050628
  13. DIFLUCAN [Concomitant]
     Dosage: 200 MG, 1X/DAY
     Route: 048
     Dates: start: 20050701, end: 20050711
  14. MODACIN [Concomitant]
     Indication: PNEUMONIA
     Dosage: 2 G, 1X/DAY
     Route: 042
     Dates: start: 20050317, end: 20050331
  15. MINOCYCLINE HCL [Concomitant]
     Indication: PNEUMONIA
     Dosage: 200 MG, 1X/DAY
     Route: 042
     Dates: start: 20050317, end: 20050328
  16. MINOCYCLINE HCL [Concomitant]
     Dosage: 100 MG, 1X/DAY
     Route: 048
     Dates: start: 20050503, end: 20050517
  17. SULPERAZON [Concomitant]
     Indication: PNEUMONIA
     Dosage: 2 G, 1X/DAY
     Route: 042
     Dates: start: 20050401, end: 20050406
  18. TARGOCID [Concomitant]
     Indication: INFECTION PROPHYLAXIS
     Dosage: 300 MG, 1X/DAY
     Route: 042
     Dates: start: 20050411, end: 20050413
  19. TARGOCID [Concomitant]
     Dosage: 400 MG, 1X/DAY
     Route: 042
     Dates: start: 20050517, end: 20050525
  20. VANCOMYCIN HCL [Concomitant]
     Indication: INFECTION PROPHYLAXIS
     Dosage: 2 G, 1X/DAY
     Route: 042
     Dates: start: 20050414, end: 20050428
  21. FUNGUARD [Concomitant]
     Indication: ANTIFUNGAL PROPHYLAXIS
     Dosage: 150 MG, 1X/DAY
     Route: 042
     Dates: start: 20050407, end: 20050413
  22. FUNGUARD [Concomitant]
     Dosage: 50 MG, 1X/DAY
     Route: 042
     Dates: start: 20050601, end: 20050614
  23. BROACT [Concomitant]
     Indication: PNEUMONIA
     Dosage: 2 G, 1X/DAY
     Route: 042
     Dates: start: 20050414, end: 20050428
  24. ITRIZOLE [Concomitant]
     Indication: ANTIFUNGAL PROPHYLAXIS
     Dosage: 200 MG, 1X/DAY
     Route: 048
     Dates: start: 20050502, end: 20050517
  25. FLUCONAZOLE (PRODIF) [Concomitant]
     Indication: ANTIFUNGAL PROPHYLAXIS
     Dosage: 200 MG, 1X/DAY
     Route: 042
     Dates: start: 20050520, end: 20050531
  26. PREDONINE [Concomitant]
     Indication: CHRONIC LYMPHOCYTIC LEUKAEMIA
     Dosage: 30 MG, 1X/DAY
     Route: 048
     Dates: start: 20050520, end: 20050704
  27. ZANTAC [Concomitant]
     Dosage: 150 MG, 1X/DAY
     Route: 048
     Dates: start: 20050225, end: 20050509
  28. ALLOPURINOL [Concomitant]
     Indication: HYPERURICAEMIA
     Dosage: 200 MG, 1X/DAY
     Route: 048
     Dates: start: 20050225, end: 20050418

REACTIONS (1)
  - INTESTINAL ADENOCARCINOMA [None]
